FAERS Safety Report 17364015 (Version 1)
Quarter: 2020Q1

REPORT INFORMATION
  Report Type: Spontaneous
  Country: US (occurrence: US)
  Receive Date: 20200204
  Receipt Date: 20200204
  Transmission Date: 20200409
  Serious: No
  Sender: FDA-Public Use
  Company Number: US-009507513-2002USA000221

PATIENT
  Sex: Male

DRUGS (1)
  1. PROSCAR [Suspect]
     Active Substance: FINASTERIDE
     Dosage: 5 MG DAILY IN THE MORNING
     Route: 048

REACTIONS (2)
  - Chromaturia [Not Recovered/Not Resolved]
  - Urine abnormality [Not Recovered/Not Resolved]
